FAERS Safety Report 25637419 (Version 2)
Quarter: 2025Q3

REPORT INFORMATION
  Report Type: Spontaneous
  Country: EU (occurrence: EU)
  Receive Date: 20250804
  Receipt Date: 20250814
  Transmission Date: 20251020
  Serious: Yes (Hospitalization, Other)
  Sender: SANDOZ
  Company Number: EU-ROCHE-3254097

PATIENT
  Age: 69 Year
  Sex: Male

DRUGS (8)
  1. ACYCLOVIR [Interacting]
     Active Substance: ACYCLOVIR
     Indication: Encephalitis herpes
     Dosage: 10 MG/KG, BID AT LEAST 21 DAYS
     Route: 065
  2. ACYCLOVIR [Interacting]
     Active Substance: ACYCLOVIR
     Dosage: 250 MG, Q12H
     Route: 065
     Dates: start: 2021
  3. ACYCLOVIR [Interacting]
     Active Substance: ACYCLOVIR
     Dosage: 250 MG, BID
     Route: 065
  4. ACYCLOVIR [Interacting]
     Active Substance: ACYCLOVIR
     Dosage: 400 MG, Q12H
     Route: 065
  5. MYCOPHENOLATE MOFETIL [Interacting]
     Active Substance: MYCOPHENOLATE MOFETIL
     Indication: Renal transplant
     Dosage: 750 MG, Q12H
     Route: 065
     Dates: start: 2015
  6. MYCOPHENOLATE MOFETIL [Interacting]
     Active Substance: MYCOPHENOLATE MOFETIL
     Indication: Kidney transplant rejection
  7. MYCOPHENOLATE MOFETIL [Interacting]
     Active Substance: MYCOPHENOLATE MOFETIL
     Indication: Prophylaxis against transplant rejection
  8. MYCOPHENOLATE MOFETIL [Interacting]
     Active Substance: MYCOPHENOLATE MOFETIL
     Indication: Prophylaxis against transplant rejection

REACTIONS (8)
  - Neurotoxicity [Recovering/Resolving]
  - Drug interaction [Recovered/Resolved]
  - Myoclonus [Recovered/Resolved]
  - Confusional state [Not Recovered/Not Resolved]
  - Antiviral drug level above therapeutic [Recovered/Resolved]
  - Blood creatinine increased [Recovered/Resolved]
  - Encephalitis herpes [Unknown]
  - Drug level increased [Unknown]

NARRATIVE: CASE EVENT DATE: 20210101
